FAERS Safety Report 16372679 (Version 1)
Quarter: 2019Q2

REPORT INFORMATION
  Report Type: Other
  Country: ES (occurrence: ES)
  Receive Date: 20190530
  Receipt Date: 20190530
  Transmission Date: 20190711
  Serious: Yes (Life-Threatening, Hospitalization)
  Sender: FDA-Public Use
  Company Number: ES-NOSTRUM LABORATORIES, INC.-2067600

PATIENT
  Age: 54 Year
  Sex: Male

DRUGS (2)
  1. METFORMIN HYDROCHLORIDE EXTENDED-RELEASE [Suspect]
     Active Substance: METFORMIN HYDROCHLORIDE
     Route: 048
  2. VALSARTAN. [Concomitant]
     Active Substance: VALSARTAN

REACTIONS (4)
  - Acute kidney injury [Unknown]
  - Lactic acidosis [Recovered/Resolved]
  - Blindness transient [Recovered/Resolved]
  - Hypovolaemic shock [Recovered/Resolved]
